FAERS Safety Report 13244500 (Version 1)
Quarter: 2017Q1

REPORT INFORMATION
  Report Type: Spontaneous
  Country: US (occurrence: US)
  Receive Date: 20170216
  Receipt Date: 20170216
  Transmission Date: 20170428
  Serious: No
  Sender: FDA-Public Use
  Company Number: US-JAZZ-2017-US-000433

PATIENT
  Age: 29 Year
  Sex: Female

DRUGS (8)
  1. XYREM [Suspect]
     Active Substance: SODIUM OXYBATE
     Indication: NARCOLEPSY
     Dosage: 2.25G, BID
     Route: 048
     Dates: start: 201211, end: 2012
  2. XYREM [Suspect]
     Active Substance: SODIUM OXYBATE
     Dosage: 4.5G, BID
     Route: 048
     Dates: start: 201301
  3. NOVOLOG [Concomitant]
     Active Substance: INSULIN ASPART
  4. TRADJENTA [Concomitant]
     Active Substance: LINAGLIPTIN
  5. INVOKANA [Concomitant]
     Active Substance: CANAGLIFLOZIN
  6. RAMIPRIL. [Concomitant]
     Active Substance: RAMIPRIL
  7. LEVEMIR [Concomitant]
     Active Substance: INSULIN DETEMIR
  8. VALTREX [Concomitant]
     Active Substance: VALACYCLOVIR HYDROCHLORIDE

REACTIONS (2)
  - Myalgia [Unknown]
  - Road traffic accident [Unknown]

NARRATIVE: CASE EVENT DATE: 2017
